FAERS Safety Report 6821975-7 (Version None)
Quarter: 2010Q2

REPORT INFORMATION
  Report Type: 
  Country: None (occurrence: None)
  Receive Date: 20100318
  Receipt Date: 20100318
  Transmission Date: 20101027
  Serious: Yes (Other)
  Sender: FDA-Public Use
  Company Number: None

PATIENT
  Age: 13 Year
  Sex: Male
  Weight: 55.9 kg

DRUGS (1)
  1. FLUORO-DEOXY GLUCOSE 18 15 MCI [Suspect]
     Indication: POSITRON EMISSION TOMOGRAM
     Dosage: 15 MCI ONCE I.V.
     Route: 042
     Dates: start: 20070507

REACTIONS (1)
  - RADIATION OVERDOSE [None]
